FAERS Safety Report 11558503 (Version 1)
Quarter: 2015Q3

REPORT INFORMATION
  Report Type: Spontaneous
  Country: CA (occurrence: CA)
  Receive Date: 20150928
  Receipt Date: 20150928
  Transmission Date: 20151125
  Serious: Yes (Other)
  Sender: FDA-Public Use
  Company Number: CA-ROCHE-1638746

PATIENT
  Age: 69 Year
  Sex: Female

DRUGS (10)
  1. SPIRIVA [Concomitant]
     Active Substance: TIOTROPIUM BROMIDE MONOHYDRATE
  2. PREDNISONE. [Concomitant]
     Active Substance: PREDNISONE
     Route: 065
     Dates: start: 201403
  3. PREDNISONE. [Concomitant]
     Active Substance: PREDNISONE
     Route: 065
     Dates: start: 201405
  4. OMNARIS [Concomitant]
     Active Substance: CICLESONIDE
  5. PREDNISONE. [Concomitant]
     Active Substance: PREDNISONE
     Route: 065
     Dates: start: 201407
  6. XOLAIR [Suspect]
     Active Substance: OMALIZUMAB
     Route: 058
     Dates: start: 201505
  7. VENTOLIN [Concomitant]
     Active Substance: ALBUTEROL SULFATE
  8. SYMBICORT [Concomitant]
     Active Substance: BUDESONIDE\FORMOTEROL FUMARATE DIHYDRATE
     Route: 065
  9. XOLAIR [Suspect]
     Active Substance: OMALIZUMAB
     Indication: ASTHMA
     Route: 058
     Dates: start: 20131218
  10. UNIPHYL [Concomitant]
     Active Substance: THEOPHYLLINE ANHYDROUS

REACTIONS (8)
  - Forced expiratory volume decreased [Unknown]
  - Nasal congestion [Unknown]
  - Hypopnoea [Unknown]
  - Hyposmia [Unknown]
  - Middle insomnia [Not Recovered/Not Resolved]
  - Dyspnoea [Unknown]
  - Hypogeusia [Unknown]
  - Wheezing [Unknown]

NARRATIVE: CASE EVENT DATE: 201403
